FAERS Safety Report 18015348 (Version 1)
Quarter: 2020Q3

REPORT INFORMATION
  Report Type: Spontaneous
  Country: US (occurrence: US)
  Receive Date: 20200713
  Receipt Date: 20200713
  Transmission Date: 20201103
  Serious: No
  Sender: FDA-Public Use
  Company Number: US-FOUNDATIONCONSUMERHC-2020-US-010931

PATIENT
  Age: 21 Year
  Sex: Female
  Weight: 70.31 kg

DRUGS (3)
  1. UNSPECIFIED SEIZURE MEDICATION [Concomitant]
  2. PLAN B ONE?STEP [Suspect]
     Active Substance: LEVONORGESTREL
     Indication: POST COITAL CONTRACEPTION
     Dosage: 1.5MG X2 DOSES
     Route: 048
     Dates: start: 20200514, end: 20200521
  3. UNSPECIFIED BIRTH CONTROL [Concomitant]
     Active Substance: UNSPECIFIED INGREDIENT

REACTIONS (5)
  - Menstruation delayed [Not Recovered/Not Resolved]
  - Product use in unapproved indication [Recovered/Resolved]
  - Intentional product misuse [Recovered/Resolved]
  - Vaginal discharge [Not Recovered/Not Resolved]
  - Abdominal distension [Not Recovered/Not Resolved]

NARRATIVE: CASE EVENT DATE: 20200514
